FAERS Safety Report 5166456-4 (Version None)
Quarter: 2006Q4

REPORT INFORMATION
  Report Type: 
  Country: None (occurrence: None)
  Receive Date: 20061207
  Receipt Date: 20061128
  Transmission Date: 20070319
  Serious: Yes (Other)
  Sender: FDA-Public Use
  Company Number: US-KINGPHARMUSA00001-K200601518

PATIENT
  Age: 25 Year
  Sex: Female
  Weight: 61 kg

DRUGS (12)
  1. SEPTRA [Suspect]
     Indication: PROPHYLAXIS
     Dosage: UNK, UNK
     Route: 065
     Dates: start: 20060206
  2. SEPTRA [Suspect]
     Dosage: UNK, UNK
     Route: 065
     Dates: start: 20060708
  3. SEPTRA [Suspect]
     Dosage: 1920 MG, TID
     Dates: start: 20061027
  4. RIFAMPICIN [Concomitant]
     Indication: TUBERCULOSIS
     Dosage: 600 MG, QD
     Route: 048
     Dates: start: 20051129, end: 20060615
  5. ISONIAZID [Concomitant]
     Indication: TUBERCULOSIS
     Dosage: 300 MG, QD
     Route: 048
     Dates: start: 20051129, end: 20060615
  6. PYRAZINAMIDE [Concomitant]
     Indication: TUBERCULOSIS
     Dosage: 2 G, QD
     Route: 048
     Dates: start: 20051129, end: 20060615
  7. ETHAMBUTOL HYDROCHLORIDE [Concomitant]
     Indication: TUBERCULOSIS
     Dosage: 1200 MG, QD
     Route: 048
     Dates: start: 20051129, end: 20060615
  8. PYRIDOXINE HCL [Concomitant]
     Indication: TUBERCULOSIS
     Dosage: 50 MG, QD
     Dates: start: 20051129, end: 20060615
  9. INDOMETHACIN    /00003801/ [Concomitant]
     Indication: TOXOPLASMOSIS
     Dates: start: 20061027
  10. LAMIVUDINE [Concomitant]
     Indication: HIV INFECTION
     Dosage: 150 MG, QD
     Route: 048
     Dates: start: 20061120
  11. STAVUDINE [Concomitant]
     Dosage: 30 MG, BID
     Route: 048
     Dates: start: 20061120
  12. NEVIRAPINE [Concomitant]
     Dosage: 200 MG, QD
     Route: 048
     Dates: start: 20061120

REACTIONS (12)
  - ANAEMIA [None]
  - CD4 LYMPHOCYTES DECREASED [None]
  - CEREBRAL INFARCTION [None]
  - DEPRESSION [None]
  - DYSARTHRIA [None]
  - LYMPHOCYTE COUNT DECREASED [None]
  - MONOPLEGIA [None]
  - NEUTROPENIA [None]
  - OESOPHAGEAL CANDIDIASIS [None]
  - ORAL CANDIDIASIS [None]
  - TOXOPLASMOSIS [None]
  - VASCULITIS [None]
